FAERS Safety Report 5771365-3 (Version None)
Quarter: 2008Q2

REPORT INFORMATION
  Report Type: 
  Country: None (occurrence: None)
  Receive Date: 20080613
  Receipt Date: 20080603
  Transmission Date: 20081010
  Serious: Yes (Death)
  Sender: FDA-Public Use
  Company Number: SA-JNJFOC-20080600905

PATIENT
  Age: 31 Year
  Sex: Female
  Weight: 60 kg

DRUGS (3)
  1. RISPERIDONE [Suspect]
     Indication: ACUTE PSYCHOSIS
     Route: 065
  2. BENZTROPINE MESYLATE [Concomitant]
     Indication: EXTRAPYRAMIDAL DISORDER
  3. ALPRAZOLAM [Concomitant]
     Indication: ANXIETY

REACTIONS (1)
  - PULMONARY EMBOLISM [None]
